FAERS Safety Report 4953831-3 (Version None)
Quarter: 2006Q1

REPORT INFORMATION
  Report Type: 
  Country: None (occurrence: None)
  Receive Date: 20060321
  Receipt Date: 20060313
  Transmission Date: 20060701
  Serious: Yes (Hospitalization)
  Sender: FDA-Public Use
  Company Number: S06-USA-00570-01

PATIENT
  Age: 88 Year
  Sex: Female
  Weight: 39.0093 kg

DRUGS (13)
  1. LEXAPRO [Suspect]
     Indication: ANXIETY
     Dosage: 10 MG QD PO
     Route: 048
     Dates: start: 20060201, end: 20060210
  2. LEXAPRO [Suspect]
     Indication: DEPRESSION
     Dosage: 10 MG QD PO
     Route: 048
     Dates: start: 20060201, end: 20060210
  3. BETA-BLOCKER (NOS) [Concomitant]
  4. LASIX [Concomitant]
  5. LISINOPRIL [Concomitant]
  6. LORTAB [Concomitant]
  7. ASPIRIN [Concomitant]
  8. PEPCID [Concomitant]
  9. ATIVAN [Concomitant]
  10. KAY CIEL DURA-TABS [Concomitant]
  11. MULTI-VITAMIN [Concomitant]
  12. MYLICON DROPS [Concomitant]
  13. LOVENOX [Concomitant]

REACTIONS (3)
  - CONDITION AGGRAVATED [None]
  - DIASTOLIC DYSFUNCTION [None]
  - HYPONATRAEMIA [None]
